FAERS Safety Report 21308825 (Version 1)
Quarter: 2022Q3

REPORT INFORMATION
  Report Type: Report from Study
  Country: FR (occurrence: FR)
  Receive Date: 20220908
  Receipt Date: 20220908
  Transmission Date: 20221026
  Serious: Yes (Hospitalization)
  Sender: FDA-Public Use
  Company Number: FR-REPLIMUNE INC,-FR-RPL-2022-000156

PATIENT
  Age: 77 Year
  Sex: Male

DRUGS (10)
  1. CEMIPLIMAB [Suspect]
     Active Substance: CEMIPLIMAB
     Indication: Squamous cell carcinoma
     Dosage: 350 MG, Q3W
     Route: 042
     Dates: start: 20220204, end: 20220204
  2. CEMIPLIMAB [Suspect]
     Active Substance: CEMIPLIMAB
     Dosage: 350 MG, Q3W
     Route: 042
     Dates: start: 20220812, end: 20220812
  3. SERINE/THREONINE-PROTEIN KINASE 19 [Suspect]
     Active Substance: SERINE/THREONINE-PROTEIN KINASE 19
     Indication: Squamous cell carcinoma
     Dosage: 10^6 PFU/ML, TOTAL VOLUME: 6ML
     Route: 036
     Dates: start: 20220225, end: 20220225
  4. SERINE/THREONINE-PROTEIN KINASE 19 [Suspect]
     Active Substance: SERINE/THREONINE-PROTEIN KINASE 19
     Dosage: 10^7 PFU/ML, Q3WEEKS, TOTAL VOLUME: 6ML
     Dates: start: 20220318, end: 20220318
  5. DOLIPRANE [Concomitant]
     Active Substance: ACETAMINOPHEN
     Indication: Analgesic therapy
     Dosage: 1 GRAM, Q8H (EVERY 8 HOURS)
     Route: 048
     Dates: start: 20220113
  6. LORAZEPAM [Concomitant]
     Active Substance: LORAZEPAM
     Indication: Product used for unknown indication
     Dosage: 1.5 CP, QD
     Route: 048
     Dates: start: 20220113
  7. ACUPAN [Concomitant]
     Active Substance: NEFOPAM HYDROCHLORIDE
     Indication: Analgesic therapy
     Dosage: 1 AMPOULE, PRN (AS NEEDED)
     Route: 048
     Dates: start: 20220113
  8. POLYETHYLENE GLYCOLS [Concomitant]
     Active Substance: POLYETHYLENE GLYCOLS
     Indication: Constipation
     Dosage: 1 (UNITS NOT REPORTED), AS NEEDED
     Route: 048
     Dates: start: 20220113
  9. CUTIMED [Concomitant]
     Indication: Prophylaxis
     Dosage: UNK, PRN
     Route: 061
     Dates: start: 20220113
  10. OXYCONTIN [Concomitant]
     Active Substance: OXYCODONE HYDROCHLORIDE
     Indication: Analgesic therapy
     Dosage: 15 MILLIGRAM, BID
     Route: 048
     Dates: start: 20220407

REACTIONS (1)
  - Cerebral amyloid angiopathy [Not Recovered/Not Resolved]

NARRATIVE: CASE EVENT DATE: 20220829
